FAERS Safety Report 21680459 (Version 2)
Quarter: 2022Q4

REPORT INFORMATION
  Report Type: Spontaneous
  Country: US (occurrence: US)
  Receive Date: 20221205
  Receipt Date: 20221209
  Transmission Date: 20230113
  Serious: Yes (Life-Threatening, Hospitalization, Other)
  Sender: FDA-Public Use
  Company Number: US-CIPLA LTD.-2022US06989

PATIENT
  Age: 64 Year
  Sex: Male

DRUGS (1)
  1. VALACYCLOVIR [Suspect]
     Active Substance: VALACYCLOVIR HYDROCHLORIDE
     Indication: Herpes zoster
     Dosage: 1000 MILLIGRAM, TID (EXCEEDING THE RECOMMENDED DOSE OF 500 MG DAILY)
     Route: 065

REACTIONS (4)
  - Encephalopathy [Recovering/Resolving]
  - Hypertension [Unknown]
  - Neurotoxicity [Recovering/Resolving]
  - Product prescribing error [Unknown]
